FAERS Safety Report 6088036-9 (Version None)
Quarter: 2009Q1

REPORT INFORMATION
  Report Type: 
  Country: None (occurrence: None)
  Receive Date: 20090223
  Receipt Date: 20090213
  Transmission Date: 20090719
  Serious: Yes (Death)
  Sender: FDA-Public Use
  Company Number: JP-ABBOTT-09P-087-0558364-00

PATIENT
  Age: 79 Year
  Sex: Male

DRUGS (6)
  1. LEUPROLIDE ACETATE [Suspect]
     Indication: PROSTATE CANCER STAGE III
     Route: 058
     Dates: start: 20061208, end: 20080611
  2. LEUPROLIDE ACETATE [Suspect]
     Route: 058
     Dates: start: 20081107, end: 20081107
  3. CASODEX [Concomitant]
     Indication: PROSTATE CANCER STAGE III
     Route: 058
  4. TAMSULOSIN HCL [Concomitant]
     Indication: DYSURIA
     Route: 048
  5. PANALDINE [Concomitant]
     Indication: CEREBROVASCULAR ACCIDENT PROPHYLAXIS
     Route: 048
  6. NORVASC [Concomitant]
     Indication: HYPERTENSION
     Route: 048

REACTIONS (1)
  - PNEUMONIA ASPIRATION [None]
